FAERS Safety Report 9997537 (Version 1)
Quarter: 2014Q1

REPORT INFORMATION
  Report Type: Spontaneous
  Country: US (occurrence: US)
  Receive Date: 20140311
  Receipt Date: 20140311
  Transmission Date: 20141002
  Serious: No
  Sender: FDA-Public Use
  Company Number: US-GLAXOSMITHKLINE-A1055554A

PATIENT
  Age: 66 Year
  Sex: Male

DRUGS (2)
  1. NICORETTE FRUIT CHILL OTC 2MG [Suspect]
     Indication: EX-TOBACCO USER
     Dates: start: 20131208
  2. NICORETTE FRUIT CHILL OTC 4MG [Suspect]
     Indication: EX-TOBACCO USER
     Dates: start: 20131226

REACTIONS (2)
  - Blood glucose increased [Not Recovered/Not Resolved]
  - Drug administration error [Unknown]
